FAERS Safety Report 23258937 (Version 2)
Quarter: 2023Q4

REPORT INFORMATION
  Report Type: Spontaneous
  Country: ES (occurrence: ES)
  Receive Date: 20231204
  Receipt Date: 20231218
  Transmission Date: 20240109
  Serious: Yes (Life-Threatening)
  Sender: FDA-Public Use
  Company Number: None

PATIENT
  Age: 33 Year
  Sex: Female
  Weight: 70 kg

DRUGS (3)
  1. ROPIVACAINE HYDROCHLORIDE [Suspect]
     Active Substance: ROPIVACAINE HYDROCHLORIDE
     Indication: Epidural anaesthesia
     Dosage: ONLY (EPIDURAL)?FORM OF ADMIN. INTRAVENOUS INFUSION ?ROUTE OF ADMIN. EPIDURAL ( END )
     Dates: start: 20231014, end: 20231014
  2. OXYTOCIN [Suspect]
     Active Substance: OXYTOCIN
     Indication: Labour induction
     Dates: start: 20231014, end: 20231014
  3. BUPIVACAINE\EPINEPHRINE [Suspect]
     Active Substance: BUPIVACAINE\EPINEPHRINE
     Indication: Anaesthesia
     Dosage: ONLY?FORM OF ADMIN. SOLUTION FOR INJECTION ?ROUTE OF ADMIN. EPIDURAL ( END )
     Dates: start: 20231014, end: 20231014

REACTIONS (3)
  - Haemorrhage [Recovering/Resolving]
  - Cardiac arrest [Recovered/Resolved with Sequelae]
  - Uterine atony [Recovered/Resolved with Sequelae]

NARRATIVE: CASE EVENT DATE: 20231014
